FAERS Safety Report 9630244 (Version 2)
Quarter: 2013Q4

REPORT INFORMATION
  Report Type: Report from Study
  Country: BR (occurrence: BR)
  Receive Date: 20131017
  Receipt Date: 20131113
  Transmission Date: 20140711
  Serious: No
  Sender: FDA-Public Use
  Company Number: PHHY2013BR116863

PATIENT
  Age: 86 Year
  Sex: Female

DRUGS (4)
  1. EXELON PATCH [Suspect]
     Indication: MEMORY IMPAIRMENT
     Dosage: 4.6 MG (PATCH 5 CM2), DAILY
     Route: 062
  2. EXELON PATCH [Suspect]
     Dosage: 9.5 MG (PATCH 10 CM2), DAILY
     Route: 062
     Dates: start: 20130825
  3. EXELON PATCH [Suspect]
     Dosage: 4.6 MG (PATCH 5 CM2), DAILY
     Route: 062
     Dates: start: 20130910
  4. CENTRUM A-ZINC [Concomitant]
     Indication: PROPHYLAXIS
     Dosage: 1 DF, QD
     Route: 048
     Dates: start: 20131005

REACTIONS (7)
  - Panic attack [Recovered/Resolved]
  - Panic disorder [Recovered/Resolved]
  - Nightmare [Recovering/Resolving]
  - Dyspnoea [Recovered/Resolved]
  - Blood test abnormal [Unknown]
  - Thyroid disorder [Unknown]
  - Anxiety [Recovered/Resolved]
